FAERS Safety Report 22996860 (Version 3)
Quarter: 2023Q4

REPORT INFORMATION
  Report Type: Spontaneous
  Country: CA (occurrence: CA)
  Receive Date: 20230928
  Receipt Date: 20231025
  Transmission Date: 20240109
  Serious: Yes (Other)
  Sender: FDA-Public Use
  Company Number: CA-CELLTRION INC.-2023CA018082

PATIENT

DRUGS (3)
  1. INFLECTRA [Suspect]
     Active Substance: INFLIXIMAB-DYYB
     Indication: Crohn^s disease
     Dosage: 1000 MG, WEEK 0 DONE IN HOSPITAL, WEEK 2 AND 6 INDUCTIONS, FREQUENCY: 8 WEEKS
     Route: 042
     Dates: start: 20230906
  2. INFLECTRA [Suspect]
     Active Substance: INFLIXIMAB-DYYB
     Dosage: 1000 MG, WEEK 2 (FREQUENCY: 8 WEEKS)
     Route: 042
     Dates: start: 20230920
  3. INFLECTRA [Suspect]
     Active Substance: INFLIXIMAB-DYYB
     Dosage: 1000 MG, WEEK 2 (FREQUENCY: 8 WEEKS)
     Route: 042
     Dates: start: 20231017

REACTIONS (3)
  - Skin laceration [Unknown]
  - Weight increased [Unknown]
  - Off label use [Unknown]

NARRATIVE: CASE EVENT DATE: 20230901
